FAERS Safety Report 23323572 (Version 1)
Quarter: 2023Q4

REPORT INFORMATION
  Report Type: Spontaneous
  Country: US (occurrence: None)
  Receive Date: 20231220
  Receipt Date: 20231220
  Transmission Date: 20240109
  Serious: No
  Sender: FDA-Public Use
  Company Number: US-ROCHE-3380689

PATIENT
  Sex: Male

DRUGS (1)
  1. RITUXAN [Suspect]
     Active Substance: RITUXIMAB
     Indication: Non-Hodgkin^s lymphoma refractory
     Dosage: NO?ON //2020 PATIENT RECEIVED 6 DOSES OF RITUXAN + BETWEEN /APR/2020 TO /NOV/2021, RECEIVED 4 DOSES
     Route: 041
     Dates: start: 2020

REACTIONS (2)
  - Off label use [Unknown]
  - No adverse event [Unknown]

NARRATIVE: CASE EVENT DATE: 20200101
